FAERS Safety Report 21872035 (Version 3)
Quarter: 2024Q3

REPORT INFORMATION
  Report Type: Spontaneous
  Country: ES (occurrence: ES)
  Receive Date: 20230117
  Receipt Date: 20240703
  Transmission Date: 20241017
  Serious: Yes (Hospitalization, Other)
  Sender: PFIZER
  Company Number: ES-CELLTRION HEALTHCARE HUNGARY KFT-2023ES000173

PATIENT
  Age: 69 Year
  Sex: Male
  Weight: 59.65 kg

DRUGS (12)
  1. RITUXIMAB [Suspect]
     Active Substance: RITUXIMAB
     Indication: Marginal zone lymphoma
     Dosage: 600 MILLIGRAM (LAST DOSE PRIOR TO SERIOUS ADVERSE EVENT WAS TAKEN ON 17NOV2022)
     Route: 042
     Dates: start: 20220922, end: 20221117
  2. RITUXIMAB [Suspect]
     Active Substance: RITUXIMAB
     Dosage: 645 MILIGRAM
     Dates: end: 20230125
  3. RITUXIMAB [Suspect]
     Active Substance: RITUXIMAB
     Dosage: 375 MG/M2 (660 MG) FOR 5 CYCLES
     Route: 042
     Dates: start: 20220922, end: 20230112
  4. LENALIDOMIDE [Suspect]
     Active Substance: LENALIDOMIDE
     Indication: Marginal zone lymphoma
     Dosage: 10 MILLIGRAM, QD FOR 12 CYCLES (ON DAYS 1 TO 21)
     Route: 048
     Dates: start: 20220722, end: 20230125
  5. LENALIDOMIDE [Suspect]
     Active Substance: LENALIDOMIDE
     Dosage: 20 MILLIGRAM, QD FOR 12 CYCLES (ON DAYS 1 TO 21)
     Route: 048
     Dates: start: 20220922
  6. LENALIDOMIDE [Suspect]
     Active Substance: LENALIDOMIDE
     Dosage: 40 MILLIGRAM (LAST DOSE PRIOR TO SERIOUS ADVERSE EVENT WAS TAKEN ON 17 NOV 2022)
     Route: 048
     Dates: start: 20220922, end: 20221117
  7. LENALIDOMIDE [Suspect]
     Active Substance: LENALIDOMIDE
     Dosage: 10 MILLIGRAM, QD FOR 12 CYCLES (ON DAYS 1 TO 21)
     Route: 048
     Dates: start: 20220922
  8. LENALIDOMIDE [Suspect]
     Active Substance: LENALIDOMIDE
     Dosage: 5 MILLIGRAM, QD (ON DAYS 1 T 21) FOR 12 CYCLES
     Route: 048
     Dates: end: 20221128
  9. LENALIDOMIDE [Suspect]
     Active Substance: LENALIDOMIDE
     Dosage: 15 MILLIGRAM, QD
     Route: 048
     Dates: end: 20230201
  10. TAFASITAMAB [Suspect]
     Active Substance: TAFASITAMAB
     Indication: Marginal zone lymphoma
     Dosage: 768 MILLIGRAM (LAST DOSE PRIOR TO SERIOUS ADVERSE EVENT WAS TAKEN ON 17 NOV 2022)
     Route: 042
     Dates: start: 20220922, end: 20221117
  11. TAFASITAMAB [Suspect]
     Active Substance: TAFASITAMAB
     Dosage: 768MG
     Route: 042
     Dates: start: 20220922, end: 20230112
  12. TAFASITAMAB [Suspect]
     Active Substance: TAFASITAMAB
     Dosage: 727 MG
     Dates: end: 20230125

REACTIONS (5)
  - Respiratory failure [Unknown]
  - Lower respiratory tract infection [Recovered/Resolved]
  - Atypical pneumonia [Unknown]
  - Dyspnoea [Recovered/Resolved]
  - Intentional product use issue [Unknown]

NARRATIVE: CASE EVENT DATE: 20220922
